FAERS Safety Report 5328964-2 (Version None)
Quarter: 2007Q2

REPORT INFORMATION
  Report Type: 
  Country: None (occurrence: None)
  Receive Date: 20070518
  Receipt Date: 20070507
  Transmission Date: 20071010
  Serious: Yes (Death)
  Sender: FDA-Public Use
  Company Number: US-SANOFI-SYNTHELABO-A03200702514

PATIENT
  Sex: Female
  Weight: 63.5 kg

DRUGS (2)
  1. AMBIEN [Suspect]
     Indication: INSOMNIA
     Dosage: EVERY THIRD NIGHT
     Route: 048
  2. AMBIEN [Suspect]
     Dosage: 12.5 MG EVERY THIRD NIGHT
     Route: 048

REACTIONS (2)
  - CARDIAC ARREST [None]
  - SOMNOLENCE [None]
